FAERS Safety Report 4313889-1 (Version None)
Quarter: 2004Q1

REPORT INFORMATION
  Report Type: 
  Country: None (occurrence: None)
  Receive Date: 20040302
  Receipt Date: 20030828
  Transmission Date: 20041129
  Serious: Yes (Hospitalization)
  Sender: FDA-Public Use
  Company Number: US011458

PATIENT
  Sex: Female

DRUGS (1)
  1. GABITRIL [Suspect]
     Indication: SLEEP DISORDER

REACTIONS (1)
  - HYPERSENSITIVITY [None]
